FAERS Safety Report 7784589-0 (Version None)
Quarter: 2011Q3

REPORT INFORMATION
  Report Type: 
  Country: None (occurrence: None)
  Receive Date: 20110928
  Receipt Date: 20110920
  Transmission Date: 20111222
  Serious: Yes (Other)
  Sender: FDA-Public Use
  Company Number: FR-UCBSA-041764

PATIENT
  Sex: Male

DRUGS (1)
  1. CIMZIA [Suspect]
     Indication: PSORIATIC ARTHROPATHY
     Route: 058

REACTIONS (2)
  - HYPERURICAEMIA [None]
  - PSORIASIS [None]
